FAERS Safety Report 10009805 (Version 2)
Quarter: 2014Q1

REPORT INFORMATION
  Report Type: Spontaneous
  Country: US (occurrence: US)
  Receive Date: 20140312
  Receipt Date: 20140312
  Transmission Date: 20141002
  Serious: Yes (Other)
  Sender: FDA-Public Use
  Company Number: US-INCYTE CORPORATION-2012IN002619

PATIENT
  Sex: 0

DRUGS (6)
  1. JAKAFI [Suspect]
     Indication: MYELOFIBROSIS
     Dosage: 10 MG, QD
     Route: 048
     Dates: start: 201206, end: 20121002
  2. JAKAFI [Suspect]
     Indication: THROMBOCYTOPENIA
  3. PREDNISONE [Concomitant]
     Dosage: 10 MG, QD
  4. LEVOTHYROXINE [Concomitant]
  5. SPIRONOLACTONE [Concomitant]
  6. WARFARIN [Concomitant]

REACTIONS (2)
  - Thrombocytopenia [Recovering/Resolving]
  - Tooth disorder [Unknown]
